FAERS Safety Report 9638644 (Version 1)
Quarter: 2013Q4

REPORT INFORMATION
  Report Type: Spontaneous
  Country: US (occurrence: US)
  Receive Date: 20131022
  Receipt Date: 20131022
  Transmission Date: 20140711
  Serious: No
  Sender: FDA-Public Use
  Company Number: US-BRISTOL-MYERS SQUIBB COMPANY-19404862

PATIENT
  Age: 84 Year
  Sex: Female
  Weight: 61.22 kg

DRUGS (3)
  1. ELIQUIS [Suspect]
     Indication: ATRIAL FIBRILLATION
     Dates: start: 201309
  2. ARMOUR THYROID [Concomitant]
  3. WARFARIN [Concomitant]

REACTIONS (1)
  - Pruritus generalised [Unknown]
